FAERS Safety Report 17427032 (Version 1)
Quarter: 2020Q1

REPORT INFORMATION
  Report Type: Spontaneous
  Country: NL (occurrence: NL)
  Receive Date: 20200217
  Receipt Date: 20200217
  Transmission Date: 20200409
  Serious: Yes (Other)
  Sender: FDA-Public Use
  Company Number: NL-MYLANLABS-2020M1017082

PATIENT
  Sex: Female
  Weight: 63 kg

DRUGS (1)
  1. SUMATRIPTAN. [Suspect]
     Active Substance: SUMATRIPTAN
     Indication: MIGRAINE
     Dosage: 100 MILLIGRAM, QD (TABLET, 50 MG (MILLIGRAM), 1 KEER PER DAG, 2)
     Route: 065
     Dates: start: 20200116

REACTIONS (6)
  - Syncope [Recovering/Resolving]
  - Feeling abnormal [Recovering/Resolving]
  - Hyperhidrosis [Not Recovered/Not Resolved]
  - Nausea [Recovering/Resolving]
  - Dizziness [Not Recovered/Not Resolved]
  - Paraesthesia [Recovering/Resolving]
